FAERS Safety Report 25070360 (Version 1)
Quarter: 2025Q1

REPORT INFORMATION
  Report Type: Spontaneous
  Country: CN (occurrence: CN)
  Receive Date: 20250312
  Receipt Date: 20250312
  Transmission Date: 20250408
  Serious: Yes (Hospitalization)
  Sender: FRESENIUS KABI
  Company Number: CN-FreseniusKabi-FK202503744

PATIENT
  Age: 73 Year
  Sex: Male
  Weight: 59.5 kg

DRUGS (5)
  1. EGG PHOSPHOLIPIDS\GLYCERIN\MEDIUM-CHAIN TRIGLYCERIDES\SOYBEAN OIL [Suspect]
     Active Substance: EGG PHOSPHOLIPIDS\GLYCERIN\MEDIUM-CHAIN TRIGLYCERIDES\SOYBEAN OIL
     Indication: Nutritional supplementation
     Dosage: FOA: INJECTION
     Route: 041
     Dates: start: 20250224, end: 20250225
  2. PROPOFOL [Suspect]
     Active Substance: PROPOFOL
     Indication: Analgesic therapy
     Dosage: FOA; INJECTION
     Dates: start: 20250222, end: 20250224
  3. PROPOFOL [Suspect]
     Active Substance: PROPOFOL
     Indication: Sedation
  4. FLURBIPROFEN AXETIL [Suspect]
     Active Substance: FLURBIPROFEN AXETIL
     Indication: Analgesic therapy
     Dosage: FOA: INJECTION
     Dates: start: 20250222, end: 20250225
  5. PANTOPRAZOLE SODIUM I.V. [Concomitant]
     Active Substance: PANTOPRAZOLE SODIUM
     Indication: Stress ulcer
     Dosage: FOA: INJECTION
     Route: 041
     Dates: start: 20250221, end: 20250225

REACTIONS (3)
  - Blood bilirubin increased [Recovering/Resolving]
  - Mucosal disorder [Recovered/Resolved]
  - Yellow skin [Recovered/Resolved]

NARRATIVE: CASE EVENT DATE: 20250224
